FAERS Safety Report 25084360 (Version 1)
Quarter: 2025Q1

REPORT INFORMATION
  Report Type: Spontaneous
  Country: SE (occurrence: SE)
  Receive Date: 20250317
  Receipt Date: 20250317
  Transmission Date: 20250408
  Serious: Yes (Death)
  Sender: MERCK SHARP & DOHME LLC
  Company Number: None

PATIENT
  Age: 20 Year
  Sex: Female

DRUGS (3)
  1. KEYTRUDA [Suspect]
     Active Substance: PEMBROLIZUMAB
     Indication: Breast cancer
     Dosage: DOSE DESCRIPTION : 200 MILLIGRAM, Q3W?DAILY DOSE : 9.4 MILLIGRAM?REGIMEN DOSE : 1400  MILLIGRAM
     Route: 042
     Dates: start: 20231025, end: 20240320
  2. CYCLOPHOSPHAMIDE [Concomitant]
     Active Substance: CYCLOPHOSPHAMIDE
     Dosage: DOSE DESCRIPTION : 90MG/M2
     Route: 042
     Dates: start: 20240207, end: 20240320
  3. EPIRUBICIN [Concomitant]
     Active Substance: EPIRUBICIN
     Dosage: DOSE DESCRIPTION : 90MG/M2
     Route: 042
     Dates: start: 20240207, end: 20240320

REACTIONS (2)
  - Cardiac failure [Fatal]
  - Myocarditis [Fatal]

NARRATIVE: CASE EVENT DATE: 20240404
